FAERS Safety Report 9095993 (Version 1)
Quarter: 2013Q1

REPORT INFORMATION
  Report Type: Spontaneous
  Country: JP (occurrence: JP)
  Receive Date: 20130207
  Receipt Date: 20130207
  Transmission Date: 20140127
  Serious: Yes (Other)
  Sender: FDA-Public Use
  Company Number: JP-EISAI INC-E2090-02499-SPO-JP

PATIENT
  Age: 62 Year
  Sex: Female

DRUGS (1)
  1. EXCEGRAN [Suspect]
     Indication: PRODUCT USED FOR UNKNOWN INDICATION
     Dosage: UNKNOWN
     Route: 048
     Dates: start: 201112, end: 201112

REACTIONS (1)
  - Oculomucocutaneous syndrome [Unknown]
